FAERS Safety Report 4349939-6 (Version None)
Quarter: 2004Q2

REPORT INFORMATION
  Report Type: 
  Country: None (occurrence: None)
  Receive Date: 20040426
  Receipt Date: 20040415
  Transmission Date: 20050107
  Serious: Yes (Other)
  Sender: FDA-Public Use
  Company Number: US-JNJFOC-20040403766

PATIENT
  Age: 69 Year
  Sex: Female
  Weight: 53.978 kg

DRUGS (1)
  1. REMICADE [Suspect]
     Indication: ANKYLOSING SPONDYLITIS
     Dosage: 400 MG, INTRAVENOUS
     Route: 042
     Dates: start: 20030822, end: 20040406

REACTIONS (1)
  - LUNG ADENOCARCINOMA [None]
